FAERS Safety Report 11538297 (Version 4)
Quarter: 2015Q4

REPORT INFORMATION
  Report Type: Report from Study
  Country: BE (occurrence: BE)
  Receive Date: 20150922
  Receipt Date: 20151203
  Transmission Date: 20160304
  Serious: Yes (Hospitalization, Other)
  Sender: FDA-Public Use
  Company Number: BE-ABBVIE-13P-013-1178480-00

PATIENT
  Sex: Male
  Weight: 65 kg

DRUGS (10)
  1. DUODOPA [Suspect]
     Active Substance: CARBIDOPA\LEVODOPA
     Dosage: AM=3ML; CD=2.2ML/HR DURING 16HRS; ED=1.5ML/3HRS
     Route: 050
     Dates: start: 20150629
  2. PROLOPA HBS [Concomitant]
     Active Substance: BENSERAZIDE\LEVODOPA
     Indication: PRODUCT USED FOR UNKNOWN INDICATION
     Dosage: IN THE EVENING
  3. DUODOPA [Suspect]
     Active Substance: CARBIDOPA\LEVODOPA
     Dosage: DOSAGE CONTINUOUSLY MONITORED AND ADJUSTED
     Route: 050
     Dates: start: 20110103, end: 20120615
  4. DUODOPA [Suspect]
     Active Substance: CARBIDOPA\LEVODOPA
     Indication: PARKINSON^S DISEASE
     Dosage: AM DOSE= 3ML, CONTIN DOSE= 2.3ML/H DURING 16HRS, EXTRA DOSE=2ML
     Route: 050
     Dates: start: 20090506, end: 20110103
  5. DUODOPA [Suspect]
     Active Substance: CARBIDOPA\LEVODOPA
     Dosage: AM = 3 ML, CONTIN DOSE = 2 ML/H DURING 16H, EXTRA DOSE = 1.2 ML
     Route: 050
     Dates: start: 20140409, end: 20141217
  6. PROLOPA [Concomitant]
     Active Substance: BENSERAZIDE\LEVODOPA
     Indication: PRODUCT USED FOR UNKNOWN INDICATION
     Dosage: 4 TO 5 A DAY
  7. DUODOPA [Suspect]
     Active Substance: CARBIDOPA\LEVODOPA
     Dosage: AM DOSE= 3ML, CONTIN DOSE= 2.3ML/H DURING 16HRS, EXTRA DOSE=1.5ML
     Route: 050
     Dates: start: 20120615, end: 20140409
  8. DUODOPA [Suspect]
     Active Substance: CARBIDOPA\LEVODOPA
     Dosage: AM = 3 ML, CD = 2 ML/H DURING 16H, ED = 1.2 ML
     Route: 050
     Dates: end: 20150629
  9. DUODOPA [Suspect]
     Active Substance: CARBIDOPA\LEVODOPA
     Dosage: AM: 3ML; CD: 1.9ML/H FOR 16HRS; ED:1.2ML
     Route: 050
     Dates: start: 20141217, end: 20150114
  10. PROLOPA [Concomitant]
     Active Substance: BENSERAZIDE\LEVODOPA
     Indication: PRODUCT USED FOR UNKNOWN INDICATION
     Dosage: WHEN PUMP IS OUT OF ORDER

REACTIONS (15)
  - Demyelinating polyneuropathy [Recovering/Resolving]
  - Anger [Unknown]
  - Dyskinesia [Recovered/Resolved]
  - Fall [Not Recovered/Not Resolved]
  - Orthostatic hypotension [Unknown]
  - Dystonia [Recovered/Resolved]
  - Hand fracture [Unknown]
  - Aggression [Unknown]
  - Depression [Unknown]
  - Social stay hospitalisation [Unknown]
  - Balance disorder [Not Recovered/Not Resolved]
  - Freezing phenomenon [Unknown]
  - Dyskinesia [Unknown]
  - Gait disturbance [Recovering/Resolving]
  - Cognitive disorder [Unknown]
